FAERS Safety Report 14624192 (Version 1)
Quarter: 2018Q1

REPORT INFORMATION
  Report Type: Spontaneous
  Country: FR (occurrence: FR)
  Receive Date: 20180312
  Receipt Date: 20180312
  Transmission Date: 20180509
  Serious: Yes (Other)
  Sender: FDA-Public Use
  Company Number: FR-MERCK KGAA-2043496

PATIENT
  Age: 42 Year
  Sex: Female
  Weight: 57 kg

DRUGS (3)
  1. L THYROXIN HENNING [Concomitant]
     Active Substance: LEVOTHYROXINE SODIUM
     Route: 048
     Dates: start: 20171001
  2. TEGRETOL [Concomitant]
     Active Substance: CARBAMAZEPINE
     Route: 048
  3. NOVOTHYROX [Suspect]
     Active Substance: LEVOTHYROXINE SODIUM
     Indication: AUTOIMMUNE THYROIDITIS
     Route: 048
     Dates: start: 20170601, end: 20171001

REACTIONS (7)
  - Depression [Recovering/Resolving]
  - Sleep disorder [Recovering/Resolving]
  - Chest pain [Not Recovered/Not Resolved]
  - Vision blurred [Recovering/Resolving]
  - Asthenia [Recovering/Resolving]
  - Headache [Recovering/Resolving]
  - Blood thyroid stimulating hormone normal [Recovered/Resolved]

NARRATIVE: CASE EVENT DATE: 20170701
